FAERS Safety Report 4517190-2 (Version None)
Quarter: 2004Q4

REPORT INFORMATION
  Report Type: 
  Country: None (occurrence: None)
  Receive Date: 20041130
  Receipt Date: 20041115
  Transmission Date: 20050328
  Serious: Yes (Hospitalization)
  Sender: FDA-Public Use
  Company Number: EWC041141467

PATIENT
  Age: 57 Year
  Sex: Female
  Weight: 120 kg

DRUGS (5)
  1. HUMATROPE [Suspect]
     Indication: GROWTH HORMONE DEFICIENCY
     Dosage: 0.4 MG
     Dates: start: 19920101
  2. HYDROCORTISONE [Concomitant]
  3. THYROXINE (LEVOTHYROXINE SODIUM) [Concomitant]
  4. PARLODEL [Concomitant]
  5. COMBIVENT [Concomitant]

REACTIONS (2)
  - SECONDARY ADRENOCORTICAL INSUFFICIENCY [None]
  - VIRAL INFECTION [None]
